FAERS Safety Report 20373154 (Version 1)
Quarter: 2022Q1

REPORT INFORMATION
  Report Type: Report from Study
  Country: US (occurrence: US)
  Receive Date: 20220125
  Receipt Date: 20220125
  Transmission Date: 20220423
  Serious: Yes (Death, Other)
  Sender: FDA-Public Use
  Company Number: US-ABBVIE-22K-163-4246473-00

PATIENT
  Age: 84 Year
  Sex: Male

DRUGS (4)
  1. HUMIRA [Suspect]
     Active Substance: ADALIMUMAB
     Indication: Rheumatoid arthritis
     Dosage: CITRATE FREE
     Route: 058
  2. MODERNA COVID-19 VACCINE [Concomitant]
     Active Substance: ELASOMERAN
     Indication: COVID-19 immunisation
     Route: 030
     Dates: start: 20210103, end: 20210103
  3. MODERNA COVID-19 VACCINE [Concomitant]
     Active Substance: ELASOMERAN
     Route: 030
     Dates: start: 20210131, end: 20210131
  4. MODERNA COVID-19 VACCINE [Concomitant]
     Active Substance: ELASOMERAN
     Route: 030
     Dates: start: 20211027, end: 20211027

REACTIONS (10)
  - Left ventricular failure [Fatal]
  - Pneumonia [Fatal]
  - Acute respiratory failure [Fatal]
  - Hypoxia [Fatal]
  - Aortic valve disease [Fatal]
  - Diabetes mellitus [Fatal]
  - Heart rate irregular [Unknown]
  - Blood pressure decreased [Unknown]
  - Myocardial infarction [Unknown]
  - Myocardial injury [Unknown]

NARRATIVE: CASE EVENT DATE: 20211229
